FAERS Safety Report 11240669 (Version 1)
Quarter: 2015Q3

REPORT INFORMATION
  Report Type: Spontaneous
  Country: US (occurrence: US)
  Receive Date: 20150706
  Receipt Date: 20150706
  Transmission Date: 20151125
  Serious: Yes (Other)
  Sender: FDA-Public Use
  Company Number: US-DSJP-DSU-2015-109987

PATIENT
  Sex: Male
  Weight: 70.3 kg

DRUGS (4)
  1. LISINOPRIL. [Concomitant]
     Active Substance: LISINOPRIL
     Indication: PRODUCT USED FOR UNKNOWN INDICATION
     Dosage: 5 MG, QD
  2. WELCHOL [Suspect]
     Active Substance: COLESEVELAM HYDROCHLORIDE
     Indication: BLOOD CHOLESTEROL INCREASED
     Dosage: 625 MG, TID
  3. BABY ASPIRIN [Concomitant]
     Active Substance: ASPIRIN
     Indication: PRODUCT USED FOR UNKNOWN INDICATION
     Dosage: 81 MG, QD
  4. WELCHOL [Suspect]
     Active Substance: COLESEVELAM HYDROCHLORIDE
     Dosage: 1250 MG, TID
     Dates: start: 2011

REACTIONS (7)
  - Off label use [Recovered/Resolved]
  - Myocardial infarction [Unknown]
  - Myalgia [Unknown]
  - Hypoaesthesia [Unknown]
  - Arthralgia [Unknown]
  - Lacrimation increased [Unknown]
  - Chest pain [Unknown]

NARRATIVE: CASE EVENT DATE: 2011
